FAERS Safety Report 7693114-4 (Version None)
Quarter: 2011Q3

REPORT INFORMATION
  Report Type: 
  Country: None (occurrence: None)
  Receive Date: 20110816
  Receipt Date: 20110801
  Transmission Date: 20111222
  Serious: Yes (Other)
  Sender: FDA-Public Use
  Company Number: KR-ACCORD-010276

PATIENT
  Age: 53 Year
  Sex: Male

DRUGS (1)
  1. GEMCITABINE [Suspect]
     Indication: PANCREATIC CARCINOMA STAGE IV

REACTIONS (6)
  - MYOCARDIAL ISCHAEMIA [None]
  - SKIN BURNING SENSATION [None]
  - NEOPLASM PROGRESSION [None]
  - ABDOMINAL PAIN [None]
  - CHOLANGITIS [None]
  - METASTASES TO LIVER [None]
